FAERS Safety Report 18639277 (Version 2)
Quarter: 2021Q1

REPORT INFORMATION
  Report Type: Spontaneous
  Country: US (occurrence: US)
  Receive Date: 20201219
  Receipt Date: 20210106
  Transmission Date: 20210419
  Serious: No
  Sender: FDA-Public Use
  Company Number: US-TAKEDA-2020TUS057866

PATIENT
  Sex: Female
  Weight: 121.54 kg

DRUGS (4)
  1. FIRAZYR [Suspect]
     Active Substance: ICATIBANT ACETATE
     Dosage: UNKNOWN, PRN
     Route: 058
  2. FIRAZYR [Suspect]
     Active Substance: ICATIBANT ACETATE
     Indication: HEREDITARY ANGIOEDEMA
     Dosage: 30 MILLIGRAM, AS NEEDED
     Route: 065
     Dates: start: 20190620
  3. FIRAZYR [Suspect]
     Active Substance: ICATIBANT ACETATE
     Indication: HEREDITARY ANGIOEDEMA
     Dosage: 30 MILLIGRAM, AS NEEDED
     Route: 065
     Dates: start: 20190620
  4. FIRAZYR [Suspect]
     Active Substance: ICATIBANT ACETATE
     Dosage: UNKNOWN, PRN
     Route: 058

REACTIONS (2)
  - Hereditary angioedema [Unknown]
  - Malaise [Recovering/Resolving]
